FAERS Safety Report 13840392 (Version 1)
Quarter: 2017Q3

REPORT INFORMATION
  Report Type: Report from Study
  Country: FR (occurrence: FR)
  Receive Date: 20170807
  Receipt Date: 20170807
  Transmission Date: 20171127
  Serious: Yes (Other)
  Sender: FDA-Public Use
  Company Number: FR-GILEAD-2017-0286470

PATIENT
  Age: 74 Year
  Sex: Male

DRUGS (5)
  1. ZELITREX [Concomitant]
     Active Substance: VALACYCLOVIR HYDROCHLORIDE
     Indication: PROPHYLAXIS
  2. IDELALISIB [Suspect]
     Active Substance: IDELALISIB
     Dosage: 150 MG, BID
     Route: 065
     Dates: start: 20151209, end: 201611
  3. RITUXIMAB. [Concomitant]
     Active Substance: RITUXIMAB
  4. BACTRIM [Concomitant]
     Active Substance: SULFAMETHOXAZOLE\TRIMETHOPRIM
     Indication: PROPHYLAXIS
  5. IDELALISIB [Suspect]
     Active Substance: IDELALISIB
     Indication: CHRONIC LYMPHOCYTIC LEUKAEMIA
     Dosage: 150 MG, BID
     Route: 065
     Dates: start: 201508, end: 20151204

REACTIONS (3)
  - Diarrhoea [Unknown]
  - Disease progression [Unknown]
  - Neutropenia [Unknown]

NARRATIVE: CASE EVENT DATE: 20151204
